FAERS Safety Report 10619909 (Version 3)
Quarter: 2014Q4

REPORT INFORMATION
  Report Type: Spontaneous
  Country: US (occurrence: None)
  Receive Date: 20141128
  Receipt Date: 20141216
  Transmission Date: 20150529
  Serious: Yes (Other)
  Sender: FDA-Public Use
  Company Number: 2014046725

PATIENT
  Age: 3 Year
  Sex: Female

DRUGS (1)
  1. DDAVP [Suspect]
     Active Substance: DESMOPRESSIN ACETATE
     Route: 042
     Dates: start: 20140509

REACTIONS (1)
  - Tonsillectomy [None]

NARRATIVE: CASE EVENT DATE: 20140509
